FAERS Safety Report 16778363 (Version 2)
Quarter: 2019Q3

REPORT INFORMATION
  Report Type: Report from Study
  Country: None (occurrence: US)
  Receive Date: 20190906
  Receipt Date: 20190926
  Transmission Date: 20191005
  Serious: Yes (Other)
  Sender: FDA-Public Use
  Company Number: US-ABBVIE-19K-163-2910780-00

PATIENT
  Age: 17 Year
  Sex: Female

DRUGS (2)
  1. HUMIRA [Suspect]
     Active Substance: ADALIMUMAB
     Indication: CROHN^S DISEASE
  2. HUMIRA [Suspect]
     Active Substance: ADALIMUMAB
     Indication: CROHN^S DISEASE
     Dosage: CITRATE FREE
     Route: 058

REACTIONS (4)
  - Gastrointestinal scarring [Recovering/Resolving]
  - Appendix disorder [Recovering/Resolving]
  - Device issue [Recovered/Resolved]
  - Gastrointestinal ulcer [Recovering/Resolving]

NARRATIVE: CASE EVENT DATE: 20190902
